FAERS Safety Report 6594384-6 (Version None)
Quarter: 2010Q1

REPORT INFORMATION
  Report Type: 
  Country: None (occurrence: None)
  Receive Date: 20100222
  Receipt Date: 20091210
  Transmission Date: 20100710
  Serious: Yes (Hospitalization)
  Sender: FDA-Public Use
  Company Number: A0845249A

PATIENT
  Sex: Male

DRUGS (3)
  1. MELPHALAN [Suspect]
     Indication: MULTIPLE MYELOMA
     Route: 065
  2. THALIDOMIDE [Suspect]
     Indication: MULTIPLE MYELOMA
     Dosage: 50MG TWICE PER DAY
     Route: 048
     Dates: start: 20090723
  3. PREDNISONE [Concomitant]

REACTIONS (4)
  - BRONCHOPNEUMONIA [None]
  - H1N1 INFLUENZA [None]
  - NEUTROPENIA [None]
  - PNEUMONIA [None]
